FAERS Safety Report 9706472 (Version 4)
Quarter: 2013Q4

REPORT INFORMATION
  Report Type: Report from Study
  Country: PL (occurrence: PL)
  Receive Date: 20131125
  Receipt Date: 20131212
  Transmission Date: 20140711
  Serious: Yes (Other)
  Sender: FDA-Public Use
  Company Number: PL-ROCHE-1306602

PATIENT
  Age: 3 Year
  Sex: Female
  Weight: 13.25 kg

DRUGS (4)
  1. PULMOZYME [Suspect]
     Indication: CYSTIC FIBROSIS
     Route: 065
     Dates: start: 201101
  2. KREON [Concomitant]
     Indication: CYSTIC FIBROSIS
     Dosage: 15000 UNITS OF LIPASE AFTER A MEAL
     Route: 048
     Dates: start: 201012
  3. VENTOLIN [Concomitant]
     Indication: CYSTIC FIBROSIS
     Dosage: PRN
     Route: 065
     Dates: start: 201101
  4. FLIXOTIDE [Concomitant]
     Indication: CYSTIC FIBROSIS
     Route: 065
     Dates: start: 201212

REACTIONS (1)
  - Encephalitis [Not Recovered/Not Resolved]
